FAERS Safety Report 10266261 (Version 1)
Quarter: 2014Q2

REPORT INFORMATION
  Report Type: Report from Study
  Country: US (occurrence: US)
  Receive Date: 20140627
  Receipt Date: 20140627
  Transmission Date: 20141212
  Serious: Yes (Other)
  Sender: FDA-Public Use
  Company Number: US-BAXTER-2014BAX034157

PATIENT
  Sex: Female

DRUGS (1)
  1. GAMMAGARD LIQUID [Suspect]
     Indication: PRODUCT USED FOR UNKNOWN INDICATION
     Route: 042

REACTIONS (7)
  - Sinusitis [Recovered/Resolved]
  - Urinary tract infection [Not Recovered/Not Resolved]
  - Hepatic enzyme abnormal [Not Recovered/Not Resolved]
  - Splenomegaly [Not Recovered/Not Resolved]
  - White blood cell count decreased [Not Recovered/Not Resolved]
  - Pyrexia [Not Recovered/Not Resolved]
  - Blood alkaline phosphatase increased [Not Recovered/Not Resolved]
